FAERS Safety Report 5574578-9 (Version None)
Quarter: 2007Q4

REPORT INFORMATION
  Report Type: 
  Country: None (occurrence: None)
  Receive Date: 20071227
  Receipt Date: 20071219
  Transmission Date: 20080405
  Serious: Yes (Hospitalization)
  Sender: FDA-Public Use
  Company Number: GB-JNJFOC-20071203802

PATIENT
  Sex: Female
  Weight: 121 kg

DRUGS (12)
  1. REMICADE [Suspect]
     Indication: RHEUMATOID ARTHRITIS
     Route: 042
  2. PREDNISOLONE [Concomitant]
  3. BECLOMETHASONE DIPROPIONATE [Concomitant]
  4. BRICANYL [Concomitant]
  5. DICLOFENAC [Concomitant]
  6. FOLIC ACID [Concomitant]
  7. METHOTREXATE [Concomitant]
  8. PAMIDRONATE DISODIUM [Concomitant]
  9. ACETAMINOPHEN [Concomitant]
  10. PAROXETINE [Concomitant]
  11. SALAZOPYRIN [Concomitant]
  12. ZANTAC [Concomitant]

REACTIONS (4)
  - FEMUR FRACTURE [None]
  - LOWER LIMB FRACTURE [None]
  - MUSCLE SPASMS [None]
  - WRIST FRACTURE [None]
